FAERS Safety Report 8661354 (Version 3)
Quarter: 2013Q1

REPORT INFORMATION
  Report Type: Spontaneous
  Country: US (occurrence: US)
  Receive Date: 20120712
  Receipt Date: 20130107
  Transmission Date: 20140127
  Serious: Yes (Life-Threatening, Hospitalization)
  Sender: FDA-Public Use
  Company Number: US-BAYER-2012-069023

PATIENT
  Age: 24 Year
  Sex: Female
  Weight: 77 kg

DRUGS (11)
  1. OCELLA [Suspect]
     Indication: POLYCYSTIC OVARIES
     Dosage: UNK
     Dates: start: 201004, end: 201006
  2. IBUPROFEN [Concomitant]
     Dosage: 600 MG, UNK
     Route: 048
  3. DILAUDID [Concomitant]
  4. PHENERGAN [Concomitant]
  5. SENNA [Concomitant]
  6. LAXATIVES [Concomitant]
  7. COLACE [Concomitant]
  8. CHLOROQUINE [Concomitant]
     Indication: MALARIA PROPHYLAXIS
     Dosage: 500 MG, 1 PILLS A DAY WEEKLY
  9. GARLIC PILLS [Concomitant]
     Indication: UNEVALUABLE EVENT
     Dosage: UNK
     Dates: start: 201006
  10. CIPROFLOXACIN [Concomitant]
     Indication: DIARRHOEA
     Dosage: 1 PILL, PRN, FOR 3 DAYS
     Dates: start: 201006
  11. NORCO [Concomitant]
     Route: 048

REACTIONS (11)
  - Pulmonary embolism [None]
  - Pain [None]
  - Dyspnoea [None]
  - Injury [None]
  - Chest pain [None]
  - Musculoskeletal pain [None]
  - Emotional distress [None]
  - Pain [None]
  - Anxiety [None]
  - Mental disorder [None]
  - Off label use [None]
